FAERS Safety Report 7656672-1 (Version None)
Quarter: 2011Q3

REPORT INFORMATION
  Report Type: 
  Country: None (occurrence: None)
  Receive Date: 20110804
  Receipt Date: 20110725
  Transmission Date: 20111222
  Serious: Yes (Hospitalization, Other)
  Sender: FDA-Public Use
  Company Number: US-MERCK-1008USA03529

PATIENT
  Age: 51 Year
  Sex: Female

DRUGS (2)
  1. FOSAMAX [Suspect]
     Indication: OSTEOPENIA
     Route: 048
     Dates: start: 19980101, end: 20090101
  2. SYNTHROID [Concomitant]
     Indication: HYPOTHYROIDISM
     Route: 065
     Dates: start: 19800101

REACTIONS (4)
  - OSTEONECROSIS OF JAW [None]
  - GINGIVAL DISORDER [None]
  - PERIODONTAL DISEASE [None]
  - THYROID DISORDER [None]
